FAERS Safety Report 21949227 (Version 1)
Quarter: 2023Q1

REPORT INFORMATION
  Report Type: Spontaneous
  Country: CA (occurrence: CA)
  Receive Date: 20230203
  Receipt Date: 20230203
  Transmission Date: 20230417
  Serious: Yes (Other)
  Sender: FDA-Public Use
  Company Number: None

PATIENT
  Age: 55 Year
  Sex: Female

DRUGS (4)
  1. METHOTREXATE [Suspect]
     Active Substance: METHOTREXATE
     Indication: Rheumatoid arthritis
     Route: 065
  2. TOFACITINIB [Suspect]
     Active Substance: TOFACITINIB
     Indication: Rheumatoid arthritis
     Dosage: 2 EVERY 1 DAYS
     Route: 048
  3. FOLIC ACID [Concomitant]
     Active Substance: FOLIC ACID
  4. LIPITOR [Concomitant]
     Active Substance: ATORVASTATIN CALCIUM

REACTIONS (10)
  - Condition aggravated [Not Recovered/Not Resolved]
  - Dermatitis contact [Not Recovered/Not Resolved]
  - Dizziness [Not Recovered/Not Resolved]
  - Feeling hot [Not Recovered/Not Resolved]
  - Foot operation [Not Recovered/Not Resolved]
  - Herpes zoster [Not Recovered/Not Resolved]
  - Infection [Not Recovered/Not Resolved]
  - Limb operation [Not Recovered/Not Resolved]
  - Product dose omission in error [Unknown]
  - Visual impairment [Not Recovered/Not Resolved]
